FAERS Safety Report 8460184-5 (Version None)
Quarter: 2012Q2

REPORT INFORMATION
  Report Type: 
  Country: None (occurrence: None)
  Receive Date: 20120622
  Receipt Date: 20120612
  Transmission Date: 20120825
  Serious: Yes (Other)
  Sender: FDA-Public Use
  Company Number: US-ABBOTT-12P-163-0945784-00

PATIENT
  Age: 42 Year
  Sex: Female

DRUGS (10)
  1. METOPROLOL SUCCINATE EXTENDED RELEASE [Concomitant]
     Indication: BLOOD PRESSURE
     Dosage: 100 MG DAILY
  2. METHOTREXATE [Concomitant]
     Indication: PRODUCT USED FOR UNKNOWN INDICATION
     Dosage: 0.6 MILLILITERS
  3. FOLIC ACID [Concomitant]
     Indication: PRODUCT USED FOR UNKNOWN INDICATION
     Dosage: 1 MG DAILY
  4. XANAX [Concomitant]
     Indication: MUSCLE TWITCHING
     Dosage: UP TO 3X DAILY AS REQUIRED; 3-4X A WEEK
  5. CYMBALTA [Concomitant]
     Indication: PAIN
     Dates: end: 20120601
  6. XANAX [Concomitant]
     Indication: RELAXATION THERAPY
  7. SAVELLA [Concomitant]
     Indication: PAIN
     Dates: start: 20120601
  8. VICODAN [Concomitant]
     Indication: PAIN
     Dosage: 4-5 TIMES PER WEEK AS NEEDED
  9. HUMIRA [Suspect]
     Indication: RHEUMATOID ARTHRITIS
     Dates: start: 20111101
  10. METHOTREXATE [Concomitant]
     Dosage: 0.7 MILLILITERS WEEKLY
     Dates: start: 20120601

REACTIONS (3)
  - OVARIAN CYST [None]
  - MALAISE [None]
  - ABDOMINAL PAIN [None]
